FAERS Safety Report 8598376-7 (Version None)
Quarter: 2012Q3

REPORT INFORMATION
  Report Type: 
  Country: None (occurrence: None)
  Receive Date: 20120816
  Receipt Date: 20120808
  Transmission Date: 20120928
  Serious: Yes (Other)
  Sender: FDA-Public Use
  Company Number: US-PFIZER INC-2012062027

PATIENT
  Age: 46 Year
  Sex: Female

DRUGS (12)
  1. CITALOPRAM [Concomitant]
     Dosage: 40 MG, 2X/DAY
  2. CHLORZOXAZONE [Concomitant]
     Dosage: 500 MG, UNK
  3. BUTALBITAL AND CAFFEINE AND PARACETAMOL [Concomitant]
     Dosage: UNK
  4. MECLIZINE [Concomitant]
     Dosage: 25 MG, ONE TABLET EVERY EIGHT HOURS
  5. DILANTIN-125 [Suspect]
     Dosage: 200 MG, 2X/DAY
     Route: 048
     Dates: start: 20090818
  6. DILANTIN [Suspect]
     Indication: GRAND MAL CONVULSION
     Dosage: 100MG CAPSULES TWO IN MORNING AND TWO IN EVENING
     Route: 048
     Dates: start: 20090421
  7. TRAMADOL [Concomitant]
     Dosage: 50 MG, 3X/DAY
  8. LYRICA [Concomitant]
     Dosage: 75 MG, 2X/DAY
  9. PHENERGAN HCL [Concomitant]
     Dosage: ONE TABLET EVERY FOUR TO EIGHT HOURS
  10. DILANTIN-125 [Suspect]
     Indication: GRAND MAL CONVULSION
     Dosage: 300 MG, 1X/DAY
     Dates: start: 20090101
  11. DILANTIN [Suspect]
     Dosage: 100MG TABLETS, TWO TABLETS TWICE DAILY
     Route: 048
     Dates: start: 20100104, end: 20100105
  12. SEROQUEL [Concomitant]
     Dosage: 100MG HALF TABLET TWICE DAILY

REACTIONS (1)
  - STEVENS-JOHNSON SYNDROME [None]
